FAERS Safety Report 21600492 (Version 1)
Quarter: 2022Q4

REPORT INFORMATION
  Report Type: Report from Study
  Country: US (occurrence: None)
  Receive Date: 20221116
  Receipt Date: 20221116
  Transmission Date: 20230113
  Serious: Yes (Other)
  Sender: FDA-Public Use
  Company Number: US-Merck Healthcare KGaA-9364925

PATIENT
  Sex: Male

DRUGS (1)
  1. REBIF [Suspect]
     Active Substance: INTERFERON BETA-1A
     Indication: Multiple sclerosis
     Dosage: REBI-JECT II/MANUAL
     Route: 058
     Dates: start: 20060918

REACTIONS (3)
  - Arthrodesis [Unknown]
  - Foot deformity [Unknown]
  - Pain [Unknown]
